FAERS Safety Report 12499621 (Version 1)
Quarter: 2016Q2

REPORT INFORMATION
  Report Type: Spontaneous
  Country: US (occurrence: US)
  Receive Date: 20160627
  Receipt Date: 20160627
  Transmission Date: 20160815
  Serious: No
  Sender: FDA-Public Use
  Company Number: US-BIOGEN-2016BI00235558

PATIENT
  Sex: Female

DRUGS (2)
  1. AVONEX [Suspect]
     Active Substance: INTERFERON BETA-1A
     Route: 065
     Dates: start: 19980605
  2. AVONEX [Suspect]
     Active Substance: INTERFERON BETA-1A
     Indication: MULTIPLE SCLEROSIS
     Route: 065
     Dates: start: 19980605

REACTIONS (8)
  - Memory impairment [Unknown]
  - General physical health deterioration [Unknown]
  - Adverse reaction [Recovered/Resolved]
  - Mental impairment [Unknown]
  - Intentional product misuse [Unknown]
  - Secondary progressive multiple sclerosis [Unknown]
  - Progressive multiple sclerosis [Not Recovered/Not Resolved]
  - Hypoaesthesia [Unknown]

NARRATIVE: CASE EVENT DATE: 2014
